FAERS Safety Report 19038839 (Version 1)
Quarter: 2021Q1

REPORT INFORMATION
  Report Type: Spontaneous
  Country: GR (occurrence: GR)
  Receive Date: 20210322
  Receipt Date: 20210322
  Transmission Date: 20210420
  Serious: Yes (Other)
  Sender: FDA-Public Use
  Company Number: GR-ALS-000241

PATIENT
  Age: 82 Year
  Sex: Male

DRUGS (5)
  1. AMLODIPINE [Suspect]
     Active Substance: AMLODIPINE BESYLATE
     Indication: PRODUCT USED FOR UNKNOWN INDICATION
     Route: 065
  2. PANCREATIN [Suspect]
     Active Substance: PANCRELIPASE
     Indication: PANCREATIC FAILURE
     Route: 065
  3. METFORMIN [Suspect]
     Active Substance: METFORMIN HYDROCHLORIDE
     Indication: DIABETES MELLITUS
     Route: 065
  4. NEBIVOLOL. [Suspect]
     Active Substance: NEBIVOLOL
     Indication: PRODUCT USED FOR UNKNOWN INDICATION
     Route: 065
  5. VALSARTAN. [Suspect]
     Active Substance: VALSARTAN
     Indication: PRODUCT USED FOR UNKNOWN INDICATION
     Route: 065

REACTIONS (9)
  - Asthenia [Unknown]
  - Decreased appetite [Unknown]
  - Carbohydrate antigen 19-9 increased [Unknown]
  - Pancreatic neoplasm [Unknown]
  - Lymphadenectomy [Unknown]
  - Abdominal pain [Unknown]
  - Splenectomy [Unknown]
  - Pancreatic pseudocyst [Unknown]
  - Pancreatectomy [Unknown]
